FAERS Safety Report 23650885 (Version 1)
Quarter: 2024Q1

REPORT INFORMATION
  Report Type: Spontaneous
  Country: IR (occurrence: IR)
  Receive Date: 20240320
  Receipt Date: 20240320
  Transmission Date: 20240409
  Serious: Yes (Hospitalization, Other)
  Sender: FDA-Public Use
  Company Number: IR-AMNEAL PHARMACEUTICALS-2024-AMRX-00807

PATIENT
  Age: 34 Year
  Sex: Female
  Weight: 58 kg

DRUGS (5)
  1. AZATHIOPRINE [Suspect]
     Active Substance: AZATHIOPRINE
     Indication: Product used for unknown indication
     Dosage: 60 TABLETS, 50 MG EACH
     Route: 065
  2. HYDROXYCHLOROQUINE SULFATE [Suspect]
     Active Substance: HYDROXYCHLOROQUINE SULFATE
     Indication: Product used for unknown indication
     Dosage: 200 MG, ABOUT 40 TABLETS
     Route: 065
  3. FLUOXETINE [Concomitant]
     Active Substance: FLUOXETINE HYDROCHLORIDE
     Indication: Depression
     Dosage: UNK
     Route: 065
  4. PREDNISOLONE [Concomitant]
     Active Substance: PREDNISOLONE
     Indication: Pain management
     Dosage: UNK
     Route: 065
  5. NAPROXEN [Concomitant]
     Active Substance: NAPROXEN
     Indication: Pain management
     Dosage: UNK
     Route: 065

REACTIONS (8)
  - Metabolic acidosis [Recovered/Resolved]
  - Respiratory alkalosis [Recovered/Resolved]
  - Hypocalcaemia [Recovered/Resolved]
  - Hypotension [Recovered/Resolved]
  - Loss of consciousness [Recovered/Resolved]
  - Hypokalaemia [Recovered/Resolved]
  - Hypoglycaemia [Recovered/Resolved]
  - Intentional overdose [Unknown]
